FAERS Safety Report 8211793-X (Version None)
Quarter: 2012Q1

REPORT INFORMATION
  Report Type: 
  Country: None (occurrence: None)
  Receive Date: 20120229
  Receipt Date: 20111021
  Transmission Date: 20120608
  Serious: Yes (Hospitalization)
  Sender: FDA-Public Use
  Company Number: PHEH2011US03966

PATIENT
  Age: 33 Year
  Sex: Male

DRUGS (7)
  1. MOTRIN [Concomitant]
  2. ANTICONVULSANTS (NO INGREDIENTS/SUBSTANCES) [Concomitant]
  3. NSAID'S (NO INGREDIENTS/SUBSTANCES) [Concomitant]
  4. TEGRETOL [Suspect]
     Dosage: 300 MG, BID, ORAL
     Route: 048
     Dates: start: 20110811, end: 20110904
  5. ELAVIL [Concomitant]
  6. NON-SULFONAMIDE ANTIBIOTICS (NO INGREDIENTS/SUBSTANCES) [Concomitant]
  7. PCM (PARACETAMOL) [Concomitant]

REACTIONS (4)
  - RASH MACULO-PAPULAR [None]
  - STEVENS-JOHNSON SYNDROME [None]
  - BLISTER [None]
  - SKIN EXFOLIATION [None]
